FAERS Safety Report 9817830 (Version 2)
Quarter: 2014Q2

REPORT INFORMATION
  Report Type: Spontaneous
  Country: SE (occurrence: SE)
  Receive Date: 20140115
  Receipt Date: 20140414
  Transmission Date: 20141212
  Serious: Yes (Death)
  Sender: FDA-Public Use
  Company Number: SE-JNJFOC-20140105342

PATIENT
  Age: 7 Year
  Sex: Female

DRUGS (5)
  1. IPREN [Suspect]
     Indication: PYREXIA
     Route: 048
     Dates: start: 20131212, end: 20131212
  2. LAMOTRIGINE [Suspect]
     Indication: EPILEPSY
     Route: 048
     Dates: start: 20131127
  3. ERGENYL [Suspect]
     Indication: EPILEPSY
     Route: 065
     Dates: start: 20130430
  4. ERGENYL [Suspect]
     Indication: EPILEPSY
     Route: 065
  5. ERGENYL [Suspect]
     Indication: EPILEPSY
     Route: 065

REACTIONS (1)
  - Reye^s syndrome [Fatal]
